FAERS Safety Report 7364999-6 (Version None)
Quarter: 2011Q1

REPORT INFORMATION
  Report Type: 
  Country: None (occurrence: None)
  Receive Date: 20110321
  Receipt Date: 20110310
  Transmission Date: 20110831
  Serious: Yes (Hospitalization)
  Sender: FDA-Public Use
  Company Number: US-SANOFI-AVENTIS-2011SA015904

PATIENT
  Age: 68 Year
  Sex: Female

DRUGS (10)
  1. CARVEDILOL [Concomitant]
  2. POTASSIUM CHLORIDE [Concomitant]
  3. ALBUTEROL [Concomitant]
  4. TRANXENE [Concomitant]
     Indication: NERVOUSNESS
  5. IMDUR [Concomitant]
  6. MULTAQ [Concomitant]
  7. LASIX [Concomitant]
  8. CRESTOR [Concomitant]
  9. PLAVIX [Suspect]
     Route: 048
     Dates: start: 20090201
  10. PANTOPRAZOLE [Concomitant]

REACTIONS (3)
  - TACHYCARDIA [None]
  - HYPERTENSION [None]
  - CARDIAC ARREST [None]
